FAERS Safety Report 23095206 (Version 2)
Quarter: 2024Q2

REPORT INFORMATION
  Report Type: Spontaneous
  Country: NO (occurrence: NO)
  Receive Date: 20231023
  Receipt Date: 20240507
  Transmission Date: 20240716
  Serious: Yes (Other)
  Sender: FDA-Public Use
  Company Number: NO-NALPROPION PHARMACEUTICALS INC.-NO-2023CUR004286

PATIENT
  Age: 25 Year
  Sex: Male
  Weight: 110 kg

DRUGS (4)
  1. BUPROPION HYDROCHLORIDE\NALTREXONE HYDROCHLORIDE [Suspect]
     Active Substance: BUPROPION HYDROCHLORIDE\NALTREXONE HYDROCHLORIDE
     Indication: Overweight
     Dosage: STRENGTH: 8/90 MG, 2 DF, 1 IN 12 HR
     Route: 048
     Dates: end: 202308
  2. PROPOFOL [Interacting]
     Active Substance: PROPOFOL
     Indication: Anaesthesia
     Dosage: 350 MG, 1 TOTAL
     Dates: start: 20230809
  3. REMIFENTANIL [Interacting]
     Active Substance: REMIFENTANIL
     Indication: Anaesthesia
     Dosage: 500 UG, 1 TOTAL
     Dates: start: 20230809
  4. FENTANYL [Interacting]
     Active Substance: FENTANYL\FENTANYL CITRATE
     Indication: Anaesthesia
     Dosage: 200 UG, 1 TOTAL
     Dates: start: 20230809

REACTIONS (5)
  - Premature recovery from anaesthesia [Recovered/Resolved]
  - Inadequate analgesia [Recovered/Resolved]
  - Anaesthetic complication [Recovered/Resolved]
  - Drug ineffective [Recovered/Resolved]
  - Drug interaction [Unknown]

NARRATIVE: CASE EVENT DATE: 20230809
